FAERS Safety Report 7817912-9 (Version None)
Quarter: 2011Q4

REPORT INFORMATION
  Report Type: 
  Country: None (occurrence: None)
  Receive Date: 20111017
  Receipt Date: 20111007
  Transmission Date: 20120403
  Serious: Yes (Death, Hospitalization)
  Sender: FDA-Public Use
  Company Number: US-GLAXOSMITHKLINE-A0758023A

PATIENT
  Sex: Male
  Weight: 150 kg

DRUGS (5)
  1. METOPROLOL TARTRATE [Concomitant]
  2. METFORMIN HYDROCHLORIDE [Concomitant]
  3. ZOLOFT [Concomitant]
  4. AVANDIA [Suspect]
     Indication: DIABETES MELLITUS
     Dosage: 4MG PER DAY
     Route: 048
     Dates: start: 20000124, end: 20061001
  5. GLUCOPHAGE [Concomitant]

REACTIONS (5)
  - CARDIAC ARREST [None]
  - CARDIAC FAILURE CONGESTIVE [None]
  - HYPOXIC-ISCHAEMIC ENCEPHALOPATHY [None]
  - MYOCARDIAL ISCHAEMIA [None]
  - MYOCARDIAL INFARCTION [None]
